FAERS Safety Report 14349821 (Version 6)
Quarter: 2018Q2

REPORT INFORMATION
  Report Type: Spontaneous
  Country: US (occurrence: DE)
  Receive Date: 20180104
  Receipt Date: 20180622
  Transmission Date: 20180711
  Serious: Yes (Hospitalization, Other)
  Sender: FDA-Public Use
  Company Number: US-AUROBINDO-AUR-APL-2017-38518

PATIENT
  Age: 20 Year
  Sex: Male

DRUGS (15)
  1. ZIPRASIDON [Suspect]
     Active Substance: ZIPRASIDONE HYDROCHLORIDE
     Dosage: 80 MG, 3 TIMES A DAY
  2. ARIPIPRAZOL [Concomitant]
     Active Substance: ARIPIPRAZOLE
     Dosage: ()
  3. SERTRALINE [Suspect]
     Active Substance: SERTRALINE HYDROCHLORIDE
     Indication: MENTAL DISORDER
     Dosage: 100 MG, DAILY
  4. OLANZAPIN [Concomitant]
     Active Substance: OLANZAPINE
     Indication: SCHIZOPHRENIA
     Dosage: ()
  5. OLANZAPIN [Concomitant]
     Active Substance: OLANZAPINE
     Dosage: ()
  6. SERTRALINE [Suspect]
     Active Substance: SERTRALINE HYDROCHLORIDE
     Indication: MAJOR DEPRESSION
     Dosage: 50 MG, DAILY
  7. SERTRALINE [Suspect]
     Active Substance: SERTRALINE HYDROCHLORIDE
     Indication: DEPRESSION
     Dosage: ()
  8. RISPERIDON [Concomitant]
     Active Substance: RISPERIDONE
     Indication: SCHIZOPHRENIA
     Dosage: ()
  9. SERTRALINE [Suspect]
     Active Substance: SERTRALINE HYDROCHLORIDE
  10. ARIPIPRAZOL [Concomitant]
     Active Substance: ARIPIPRAZOLE
     Indication: SCHIZOPHRENIA
     Dosage: ()
  11. RISPERIDON [Concomitant]
     Active Substance: RISPERIDONE
     Dosage: ()
  12. SERTRALINE [Suspect]
     Active Substance: SERTRALINE HYDROCHLORIDE
     Indication: DEPRESSIVE SYMPTOM
     Dosage: 50 MG, 3 TIMES A DAY
     Route: 065
  13. ZIPRASIDON [Suspect]
     Active Substance: ZIPRASIDONE HYDROCHLORIDE
     Indication: PSYCHOTIC DISORDER
     Dosage: 60 MG, DAILY
     Route: 065
  14. SERTRALINE [Suspect]
     Active Substance: SERTRALINE HYDROCHLORIDE
  15. SERTRALINE [Suspect]
     Active Substance: SERTRALINE HYDROCHLORIDE
     Indication: SCHIZOPHRENIA
     Dosage: 100 MG, 3 TIMES A DAY

REACTIONS (19)
  - Anxiety [Recovered/Resolved]
  - Disturbance in attention [Recovered/Resolved]
  - Hyperhidrosis [Recovered/Resolved]
  - Mydriasis [Recovered/Resolved]
  - Agitation [Recovered/Resolved]
  - Depressive symptom [Unknown]
  - Drug interaction [Unknown]
  - Cardiac arrest [Unknown]
  - Psychotic symptom [Recovered/Resolved]
  - Hyperreflexia [Recovered/Resolved]
  - Product use in unapproved indication [Unknown]
  - Serotonin syndrome [Unknown]
  - Muscle spasms [Recovered/Resolved]
  - Tremor [Recovered/Resolved]
  - Nausea [Recovered/Resolved]
  - Restlessness [Recovered/Resolved]
  - Ventricular tachycardia [Recovered/Resolved]
  - Hallucination, auditory [Recovered/Resolved]
  - Myoclonus [Recovered/Resolved]
